FAERS Safety Report 19619271 (Version 2)
Quarter: 2022Q2

REPORT INFORMATION
  Report Type: Spontaneous
  Country: US (occurrence: None)
  Receive Date: 20210728
  Receipt Date: 20220621
  Transmission Date: 20220720
  Serious: No
  Sender: FDA-Public Use
  Company Number: US-ROCHE-2688456

PATIENT
  Sex: Female

DRUGS (6)
  1. XELODA [Suspect]
     Active Substance: CAPECITABINE
     Indication: Breast cancer female
     Dosage: ONGOING: UNKNOWN
     Route: 048
  2. XELODA [Suspect]
     Active Substance: CAPECITABINE
     Indication: Breast cancer female
     Dosage: 1500 MG IN AM, 1000 MG IN PM X14 DAYS, 7 OFF; ONGOING: UNKNOWN
     Route: 048
     Dates: start: 20200919
  3. TUKYSA [Suspect]
     Active Substance: TUCATINIB
     Indication: Breast cancer female
     Dosage: ONGOING: UNKNOWN
     Route: 048
     Dates: start: 20200728
  4. TUKYSA [Suspect]
     Active Substance: TUCATINIB
     Indication: Breast cancer female
     Route: 048
  5. TUKYSA [Suspect]
     Active Substance: TUCATINIB
     Dosage: ONGOING: UNKNOWN
     Route: 048
     Dates: start: 20200914
  6. ENHERTU [Concomitant]
     Active Substance: FAM-TRASTUZUMAB DERUXTECAN-NXKI

REACTIONS (13)
  - Dyspepsia [Unknown]
  - Asthenia [Unknown]
  - Feeling abnormal [Unknown]
  - Flatulence [Unknown]
  - Fatigue [Unknown]
  - Dehydration [Unknown]
  - Abdominal pain [Unknown]
  - Decreased appetite [Unknown]
  - Diarrhoea [Unknown]
  - Weight decreased [Unknown]
  - Nausea [Unknown]
  - Vomiting [Unknown]
  - Product use issue [Unknown]
